FAERS Safety Report 18856030 (Version 5)
Quarter: 2021Q2

REPORT INFORMATION
  Report Type: Spontaneous
  Country: GB (occurrence: GB)
  Receive Date: 20210206
  Receipt Date: 20210521
  Transmission Date: 20210717
  Serious: Yes (Hospitalization, Other)
  Sender: FDA-Public Use
  Company Number: GB-ACCORD-216780

PATIENT
  Age: 56 Year
  Sex: Female

DRUGS (65)
  1. NAPROXEN. [Concomitant]
     Active Substance: NAPROXEN
     Indication: PRODUCT USED FOR UNKNOWN INDICATION
     Dosage: 500 MILLIGRAM, ONCE A DAY (250 MG TWO TIMES DAY)
     Route: 048
  2. COLECALCIFEROL [Concomitant]
     Active Substance: CHOLECALCIFEROL
     Indication: BONE DISORDER
     Dosage: 400 INTERNATIONAL UNIT, ONCE A DAY
     Route: 048
     Dates: start: 20150827
  3. CYCLIZINE [Concomitant]
     Active Substance: CYCLIZINE
     Indication: PRODUCT USED FOR UNKNOWN INDICATION
     Dosage: 150 MILLIGRAM, DAILY
     Route: 048
     Dates: start: 201507
  4. DERMOL [Concomitant]
     Active Substance: BENZALKONIUM CHLORIDE\CHLORHEXIDINE HYDROCHLORIDE\ISOPROPYL MYRISTATE\PARAFFIN
     Indication: PRODUCT USED FOR UNKNOWN INDICATION
     Dosage: UNK, ONCE A DAY
     Route: 061
  5. HYOSCINE [Concomitant]
     Active Substance: SCOPOLAMINE
     Indication: NAUSEA
     Dosage: 30 MILLIGRAM, DAILY
     Route: 048
     Dates: start: 20181222
  6. INHIXA [Concomitant]
     Active Substance: ENOXAPARIN SODIUM
     Indication: THROMBOSIS PROPHYLAXIS
     Dosage: 40 MILLIGRAM, ONCE A DAY
     Route: 058
     Dates: start: 20190610
  7. BENZYLPENICILLIN [Concomitant]
     Active Substance: PENICILLIN G
     Indication: PYREXIA
     Dosage: 1.2 GRAM, 0.25 DAY
     Route: 042
     Dates: start: 20180912
  8. METRONIDAZOLE. [Concomitant]
     Active Substance: METRONIDAZOLE
     Indication: CELLULITIS
     Dosage: UNK
     Route: 048
  9. LETROZOLE. [Suspect]
     Active Substance: LETROZOLE
     Indication: HER2 POSITIVE BREAST CANCER
     Route: 048
     Dates: start: 201507, end: 20170427
  10. CLARITHROMYCIN. [Concomitant]
     Active Substance: CLARITHROMYCIN
     Indication: PYREXIA
     Dosage: 500 MILLIGRAM, TWO TIMES A DAY
     Route: 048
     Dates: start: 20190611, end: 20190611
  11. COTRIMOXAZOLE [Concomitant]
     Active Substance: SULFAMETHOXAZOLE\TRIMETHOPRIM
     Indication: SEPSIS
     Dosage: TWO TIMES A DAY
     Route: 042
     Dates: start: 20181015, end: 20181022
  12. GABAPENTIN. [Concomitant]
     Active Substance: GABAPENTIN
     Dosage: 300 MILLIGRAM (3 DAY)
     Route: 048
     Dates: start: 20151231
  13. METRONIDAZOLE. [Concomitant]
     Active Substance: METRONIDAZOLE
     Indication: PYREXIA
     Dosage: UNK
     Route: 048
     Dates: start: 20170701, end: 20170708
  14. PARACETAMOL [Concomitant]
     Active Substance: ACETAMINOPHEN
     Indication: PRODUCT USED FOR UNKNOWN INDICATION
     Dosage: 500 MILLIGRAM
     Route: 048
     Dates: start: 201504
  15. CLINDAMYCIN. [Concomitant]
     Active Substance: CLINDAMYCIN
     Indication: STAPHYLOCOCCAL INFECTION
     Dosage: 4.8 GRAM, DAILY
     Route: 042
     Dates: start: 20190611
  16. DIAZEPAM. [Concomitant]
     Active Substance: DIAZEPAM
     Indication: MUSCULOSKELETAL STIFFNESS
  17. LANSOPRAZOLE. [Concomitant]
     Active Substance: LANSOPRAZOLE
     Indication: PRODUCT USED FOR UNKNOWN INDICATION
     Dosage: 30 MILLIGRAM, ONCE A DAY
     Route: 048
  18. LEVOTHYROXINE. [Concomitant]
     Active Substance: LEVOTHYROXINE
     Indication: HYPOTHYROIDISM
     Dosage: 50 MICROGRAM, ONCE A DAY
     Route: 048
     Dates: start: 20200311
  19. ACICLOVIR [Concomitant]
     Active Substance: ACYCLOVIR
     Dosage: 5 PERCENT
     Route: 061
     Dates: start: 20161213
  20. CODEINE [Concomitant]
     Active Substance: CODEINE
     Indication: PRODUCT USED FOR UNKNOWN INDICATION
     Dosage: 30 MILLIGRAM, AS NECESSARY
     Route: 048
     Dates: start: 201504
  21. FLUCLOXACILLIN [Concomitant]
     Active Substance: FLUCLOXACILLIN
     Dosage: 2000 MILLIGRAM ONCE A DAY,  (500 MILLIGRAM, 4 TIMES A DAY)
     Route: 048
     Dates: start: 20180915, end: 20180921
  22. GABAPENTIN. [Concomitant]
     Active Substance: GABAPENTIN
     Dosage: 1.2 GRAIN, 3 DAY
     Route: 048
  23. EXEMESTANE. [Suspect]
     Active Substance: EXEMESTANE
     Indication: BREAST CANCER METASTATIC
     Route: 048
     Dates: start: 20170428, end: 20180110
  24. LOPERAMIDE [Concomitant]
     Active Substance: LOPERAMIDE
     Indication: DIARRHOEA
     Dosage: UNK
     Route: 065
     Dates: start: 201804, end: 2019
  25. PIPERACILLIN/TAZOBACTAM [Concomitant]
     Active Substance: PIPERACILLIN SODIUM\TAZOBACTAM SODIUM
     Indication: PRODUCT USED FOR UNKNOWN INDICATION
     Dosage: UNK
     Route: 065
  26. PROMETHAZINE [Concomitant]
     Active Substance: PROMETHAZINE HYDROCHLORIDE
     Indication: PRODUCT USED FOR UNKNOWN INDICATION
     Dosage: 25 MILLIGRAM
     Route: 048
  27. LANSOPRAZOLE. [Concomitant]
     Active Substance: LANSOPRAZOLE
     Dosage: 15 MILLIGRAM, ONCE A DAY
     Route: 048
     Dates: start: 2001
  28. TRASTUZUMAB/VORHYALURONIDASE ALFA [Suspect]
     Active Substance: HYALURONIDASE (HUMAN RECOMBINANT)\TRASTUZUMAB
     Indication: BREAST CANCER METASTATIC
     Dosage: ON 22?DEC?2017, SHE RECEIVED MOST RECENT DOSE OF TRASTUZUMAB;VORHYALURONIDASE ALFA
  29. XGEVA [Suspect]
     Active Substance: DENOSUMAB
     Indication: METASTASES TO BONE
     Dosage: 120 MILLIGRAM
     Route: 058
     Dates: start: 20170604, end: 20170613
  30. MORPHINE [Concomitant]
     Active Substance: MORPHINE
     Dosage: 40 MILLIGRAM, DAILY
     Route: 048
     Dates: start: 20171224
  31. COTRIMOXAZOLE [Concomitant]
     Active Substance: SULFAMETHOXAZOLE\TRIMETHOPRIM
     Dosage: 960 MILLIGRAM, TWO TIMES A DAY
     Route: 042
     Dates: start: 20190611
  32. DOXYCYCLINE. [Concomitant]
     Active Substance: DOXYCYCLINE
     Indication: LOWER RESPIRATORY TRACT INFECTION
     Dosage: 100 MILLIGRAM, ONCE A DAY
     Route: 048
     Dates: start: 20170112, end: 20170118
  33. FUROSEMIDE. [Concomitant]
     Active Substance: FUROSEMIDE
     Dosage: 40 MILLIGRAM, ONCE A DAY
     Route: 042
     Dates: start: 20200622, end: 20200623
  34. FUROSEMIDE. [Concomitant]
     Active Substance: FUROSEMIDE
     Dosage: 40 MILLIGRAM, ONCE A DAY
     Route: 042
     Dates: start: 20200623, end: 20200626
  35. AMOXICILLIN. [Concomitant]
     Active Substance: AMOXICILLIN
     Dosage: 3000 MILLIGRAM, DAILY
     Route: 048
     Dates: start: 20180701, end: 20180711
  36. MAGNESIUM ASPARTATE/MAGNESIUM ASPARTATE HYDROCHLOR [Concomitant]
     Active Substance: MAGNESIUM ASPARTATE HYDROCHLORIDE
     Indication: HYPOMAGNESAEMIA
     Dosage: 6.5 MILLIGRAM, TWO TIMES A DAY ONGOING
     Route: 048
     Dates: start: 20191111
  37. CLARITHROMYCIN. [Concomitant]
     Active Substance: CLARITHROMYCIN
     Indication: PYREXIA
     Dosage: 500 MILLIGRAM, TWO TIMES A DAY
     Route: 048
     Dates: start: 20180701, end: 20180711
  38. IRON [Concomitant]
     Active Substance: IRON
     Indication: ANAEMIA
     Dosage: 200 MILLIGRAM, ONCE A DAY ONGOING
     Route: 048
     Dates: start: 20200804
  39. FLUCLOXACILLIN [Concomitant]
     Active Substance: FLUCLOXACILLIN
     Indication: PARONYCHIA
     Dosage: 2000 MILLIGRAM ONCE A DAY,  (500 MILLIGRAM, 4 TIMES A DAY)
     Route: 048
     Dates: start: 20180910, end: 20180912
  40. GABAPENTIN. [Concomitant]
     Active Substance: GABAPENTIN
     Indication: PRODUCT USED FOR UNKNOWN INDICATION
     Dosage: 3.6 GRAM, DAILY
     Route: 048
  41. CIPROFLOXACIN. [Concomitant]
     Active Substance: CIPROFLOXACIN
     Indication: PRODUCT USED FOR UNKNOWN INDICATION
     Dosage: 750 MILLIGRAM, 0.5 DAY
     Route: 048
     Dates: start: 20190205
  42. LINEZOLID. [Concomitant]
     Active Substance: LINEZOLID
     Indication: PYREXIA
     Dosage: 600 MILLIGRAM, 0.5 DAY
     Route: 048
     Dates: start: 20181223, end: 20181227
  43. DEXAMETHASONE. [Concomitant]
     Active Substance: DEXAMETHASONE
     Indication: PRODUCT USED FOR UNKNOWN INDICATION
     Dosage: 4 MILLIGRAM, 0.5 DAY
     Dates: start: 20151104, end: 20151110
  44. DIAZEPAM. [Concomitant]
     Active Substance: DIAZEPAM
     Indication: BACK PAIN
     Dates: start: 20180105
  45. DOXYCYCLINE. [Concomitant]
     Active Substance: DOXYCYCLINE
     Indication: PYREXIA
     Dosage: 100 MILLIGRAM, TWO TIMES A DAY
     Route: 048
     Dates: start: 20180814
  46. TRASTUZUMAB/EMTANSINE [Suspect]
     Active Substance: ADO-TRASTUZUMAB EMTANSINE
     Indication: HER2 POSITIVE BREAST CANCER
     Dosage: 4 WEEK
     Route: 042
     Dates: start: 20180118
  47. TINZAPARIN/TINZAPARIN SODIUM [Concomitant]
     Active Substance: TINZAPARIN SODIUM
     Dosage: 22000 INTERNATIONAL UNIT
     Route: 058
     Dates: start: 20200622
  48. MEROPENEM. [Concomitant]
     Active Substance: MEROPENEM
     Dosage: 1 GRAM, 0.33 DAY
     Route: 042
     Dates: start: 20190205
  49. ZANAMIVIR [Concomitant]
     Active Substance: ZANAMIVIR
     Dates: start: 20191218, end: 20191219
  50. EXEMESTANE. [Suspect]
     Active Substance: EXEMESTANE
     Indication: HER2 POSITIVE BREAST CANCER
     Route: 048
     Dates: start: 20170428, end: 20180110
  51. CLARITHROMYCIN. [Concomitant]
     Active Substance: CLARITHROMYCIN
     Indication: LOWER RESPIRATORY TRACT INFECTION
     Dosage: 500 MILLIGRAM, TWO TIMES A DAY
     Route: 048
     Dates: start: 20190415
  52. FLUCLOXACILLIN [Concomitant]
     Active Substance: FLUCLOXACILLIN
     Indication: PYREXIA
     Dosage: 2000 MILLIGRAM ONCE A DAY,  (500 MILLIGRAM, 4 TIMES A DAY)
     Route: 048
     Dates: start: 20180912, end: 20180915
  53. FUROSEMIDE. [Concomitant]
     Active Substance: FUROSEMIDE
     Dosage: 40 MILLIGRAM, ONCE A DAY
     Route: 042
     Dates: start: 20200616
  54. CITALOPRAM [Concomitant]
     Active Substance: CITALOPRAM HYDROBROMIDE
     Indication: PRODUCT USED FOR UNKNOWN INDICATION
     Dosage: 40 MILLIGRAM, ONCE A DAY
     Route: 048
     Dates: start: 2005
  55. LISINOPRIL. [Concomitant]
     Active Substance: LISINOPRIL
     Indication: EJECTION FRACTION DECREASED
     Dosage: 7.5 MILLIGRAM, DAILY
     Route: 048
     Dates: start: 20161110
  56. TEICOPLANIN [Concomitant]
     Active Substance: TEICOPLANIN
     Indication: PRODUCT USED FOR UNKNOWN INDICATION
  57. FLUCLOXACILLIN [Concomitant]
     Active Substance: FLUCLOXACILLIN
     Indication: CELLULITIS
     Dosage: 2000 MILLIGRAM ONCE A DAY,  (500 MILLIGRAM, 4 TIMES A DAY)
     Route: 048
     Dates: start: 20161110, end: 20171117
  58. LETROZOLE. [Suspect]
     Active Substance: LETROZOLE
     Indication: BREAST CANCER METASTATIC
     Route: 048
     Dates: start: 201507, end: 20170427
  59. ACIDEX [Concomitant]
     Indication: PRODUCT USED FOR UNKNOWN INDICATION
     Dosage: 15 MILLILITER
     Route: 048
  60. MORPHINE [Concomitant]
     Active Substance: MORPHINE
     Indication: PAIN
     Dosage: 30 MILLIGRAM, TWO TIMES A DAY (60 MG ONCE A DAY)
     Route: 048
     Dates: start: 201611
  61. MORPHINE [Concomitant]
     Active Substance: MORPHINE
     Indication: METASTATIC NEOPLASM
  62. AMOXICILLIN. [Concomitant]
     Active Substance: AMOXICILLIN
     Indication: LOWER RESPIRATORY TRACT INFECTION
     Dosage: 3000 MILLIGRAM, ONCE A DAY (1000MG (0.33 DAY)
     Route: 048
     Dates: start: 20170701, end: 20170706
  63. AMOXICILLIN SODIUM/CLAVULANATE POTASSIUM [Concomitant]
     Active Substance: AMOXICILLIN\CLAVULANATE POTASSIUM
     Route: 048
     Dates: start: 20190322
  64. METRONIDAZOLE. [Concomitant]
     Active Substance: METRONIDAZOLE
     Indication: OSTEOMYELITIS
     Dosage: UNK
     Route: 048
     Dates: start: 20170701, end: 20170708
  65. FUROSEMIDE. [Concomitant]
     Active Substance: FUROSEMIDE
     Indication: OEDEMA
     Dosage: 40 MILLIGRAM, ONCE A DAY
     Route: 042
     Dates: start: 20151112, end: 20151118

REACTIONS (12)
  - Infection [Not Recovered/Not Resolved]
  - Escherichia infection [Recovered/Resolved]
  - Klebsiella infection [Recovered/Resolved]
  - Constipation [Recovered/Resolved]
  - Pyrexia [Not Recovered/Not Resolved]
  - Candida infection [Recovered/Resolved]
  - Lower respiratory tract infection [Recovered/Resolved]
  - Diarrhoea [Recovered/Resolved]
  - Sepsis [Recovered/Resolved]
  - Haemoptysis [Recovered/Resolved]
  - Cellulitis [Not Recovered/Not Resolved]
  - Pneumonia [Recovered/Resolved]

NARRATIVE: CASE EVENT DATE: 20180427
